FAERS Safety Report 5661797-6 (Version None)
Quarter: 2008Q1

REPORT INFORMATION
  Report Type: 
  Country: None (occurrence: None)
  Receive Date: 20080312
  Receipt Date: 20080218
  Transmission Date: 20080703
  Serious: Yes (Death)
  Sender: FDA-Public Use
  Company Number: MX-BAYER-200812040LA

PATIENT
  Age: 33 Year
  Sex: Male

DRUGS (6)
  1. MAB CAMPATH [Suspect]
     Indication: GRAFT VERSUS HOST DISEASE
     Route: 058
  2. TRIMETHOPRIM - SULPHAMETHOXAZOLE [Concomitant]
     Indication: PROPHYLAXIS
     Route: 065
  3. FLUCONAZOLE [Concomitant]
     Indication: ANTIFUNGAL PROPHYLAXIS
     Route: 065
  4. ACYCLOVIR [Concomitant]
     Indication: ANTIVIRAL PROPHYLAXIS
     Route: 065
  5. ITRACONAZOLE [Concomitant]
     Indication: DRUG USE FOR UNKNOWN INDICATION
     Route: 065
  6. METHOTREXATE [Concomitant]
     Indication: PROPHYLAXIS AGAINST GRAFT VERSUS HOST DISEASE
     Route: 065

REACTIONS (2)
  - DRUG WITHDRAWAL SYNDROME [None]
  - GRAFT VERSUS HOST DISEASE [None]
